FAERS Safety Report 17130589 (Version 1)
Quarter: 2019Q4

REPORT INFORMATION
  Report Type: Spontaneous
  Country: CN (occurrence: CN)
  Receive Date: 20191209
  Receipt Date: 20191209
  Transmission Date: 20200122
  Serious: Yes (Other)
  Sender: FDA-Public Use
  Company Number: CN-BAYER-2019-218346

PATIENT
  Age: 68 Year
  Sex: Male
  Weight: 57 kg

DRUGS (1)
  1. STIVARGA [Suspect]
     Active Substance: REGORAFENIB
     Indication: TARGETED CANCER THERAPY
     Dosage: 80 MG, QD
     Route: 048
     Dates: start: 20191108, end: 20191114

REACTIONS (5)
  - Pain in extremity [Recovering/Resolving]
  - Blood pressure increased [Recovering/Resolving]
  - Blister [Recovering/Resolving]
  - Dizziness [None]
  - Off label use [None]

NARRATIVE: CASE EVENT DATE: 20191108
